FAERS Safety Report 14682545 (Version 1)
Quarter: 2018Q1

REPORT INFORMATION
  Report Type: Report from Study
  Country: None (occurrence: US)
  Receive Date: 20180327
  Receipt Date: 20180327
  Transmission Date: 20180509
  Serious: Yes (Other)
  Sender: FDA-Public Use
  Company Number: US-ABBVIE-18K-163-2295571-00

PATIENT
  Age: 20 Year
  Sex: Female
  Weight: 58.57 kg

DRUGS (3)
  1. HUMIRA [Suspect]
     Active Substance: ADALIMUMAB
     Route: 058
     Dates: start: 201803
  2. HUMIRA [Suspect]
     Active Substance: ADALIMUMAB
     Indication: CROHN^S DISEASE
     Route: 058
     Dates: start: 2015, end: 201803
  3. METRONIDAZOLE. [Concomitant]
     Active Substance: METRONIDAZOLE
     Indication: PROPHYLAXIS
     Dates: start: 20180308, end: 201803

REACTIONS (4)
  - Colonoscopy abnormal [Unknown]
  - Fistula [Recovering/Resolving]
  - Nasopharyngitis [Not Recovered/Not Resolved]
  - Fistula repair [Recovering/Resolving]

NARRATIVE: CASE EVENT DATE: 201803
